FAERS Safety Report 10602030 (Version 1)
Quarter: 2014Q4

REPORT INFORMATION
  Report Type: Spontaneous
  Country: US (occurrence: US)
  Receive Date: 20141124
  Receipt Date: 20141124
  Transmission Date: 20150529
  Serious: No
  Sender: FDA-Public Use
  Company Number: US-EISAI MEDICAL RESEARCH-E7389-05043-SPO-US

PATIENT
  Age: 62 Year
  Sex: Female
  Weight: 51.2 kg

DRUGS (2)
  1. ARMOUR THYROID [Concomitant]
     Active Substance: THYROID, PORCINE\THYROID, UNSPECIFIED
     Indication: HYPOTHYROIDISM
  2. HALAVEN [Suspect]
     Active Substance: ERIBULIN MESYLATE
     Indication: BREAST CANCER STAGE IV
     Dosage: UNKNOWN (REDUCED DOSE)
     Route: 041
     Dates: start: 201308, end: 20140406

REACTIONS (4)
  - Diaphragmalgia [Not Recovered/Not Resolved]
  - Pyrexia [Recovered/Resolved]
  - Muscle spasms [Not Recovered/Not Resolved]
  - Constipation [Not Recovered/Not Resolved]

NARRATIVE: CASE EVENT DATE: 201308
